FAERS Safety Report 13710883 (Version 1)
Quarter: 2017Q3

REPORT INFORMATION
  Report Type: Spontaneous
  Country: US (occurrence: US)
  Receive Date: 20170703
  Receipt Date: 20170703
  Transmission Date: 20171127
  Serious: Yes (Other)
  Sender: FDA-Public Use
  Company Number: US-GLAXOSMITHKLINE-US2017101291

PATIENT
  Age: 83 Year
  Sex: Female

DRUGS (13)
  1. AMLODIPINE [Concomitant]
     Active Substance: AMLODIPINE BESYLATE
  2. DIGOXIN. [Concomitant]
     Active Substance: DIGOXIN
  3. PLAVIX [Concomitant]
     Active Substance: CLOPIDOGREL BISULFATE
  4. VENTOLIN HFA [Suspect]
     Active Substance: ALBUTEROL SULFATE
     Indication: CHRONIC OBSTRUCTIVE PULMONARY DISEASE
     Dosage: 2 PUFF(S), QID
     Route: 055
  5. NITROGLYCERIN. [Concomitant]
     Active Substance: NITROGLYCERIN
  6. PRAVASTATIN. [Concomitant]
     Active Substance: PRAVASTATIN
  7. PREDNISONE. [Concomitant]
     Active Substance: PREDNISONE
  8. DULERA [Concomitant]
     Active Substance: FORMOTEROL FUMARATE DIHYDRATE\MOMETASONE FUROATE
  9. WARFARIN [Concomitant]
     Active Substance: WARFARIN
  10. IMDUR [Concomitant]
     Active Substance: ISOSORBIDE MONONITRATE
  11. TYLENOL [Concomitant]
     Active Substance: ACETAMINOPHEN
  12. SPIRIVA [Concomitant]
     Active Substance: TIOTROPIUM BROMIDE MONOHYDRATE
  13. ZANTAC [Concomitant]
     Active Substance: RANITIDINE HYDROCHLORIDE

REACTIONS (7)
  - Pancreatic carcinoma [Not Recovered/Not Resolved]
  - Malaise [Unknown]
  - Lung neoplasm [Not Recovered/Not Resolved]
  - Lung neoplasm malignant [Not Recovered/Not Resolved]
  - Pancreatic mass [Not Recovered/Not Resolved]
  - Drug ineffective [Not Recovered/Not Resolved]
  - Wrong technique in product usage process [Unknown]

NARRATIVE: CASE EVENT DATE: 201701
